FAERS Safety Report 7994293-1 (Version None)
Quarter: 2011Q4

REPORT INFORMATION
  Report Type: 
  Country: None (occurrence: None)
  Receive Date: 20111217
  Receipt Date: 20111217
  Transmission Date: 20120403
  Serious: No
  Sender: FDA-Public Use
  Company Number: None

PATIENT
  Age: 68 Year
  Sex: Female
  Weight: 70.7611 kg

DRUGS (2)
  1. LEVOFLOXACIN [Suspect]
     Indication: COUGH
     Dosage: ONE TABLET EVERY DAY 10 DAYS BY MOUTH
     Route: 048
     Dates: start: 20110829, end: 20110905
  2. LEVOFLOXACIN [Suspect]
     Indication: LOWER RESPIRATORY TRACT INFECTION
     Dosage: ONE TABLET EVERY DAY 10 DAYS BY MOUTH
     Route: 048
     Dates: start: 20110829, end: 20110905

REACTIONS (4)
  - MUSCULOSKELETAL CHEST PAIN [None]
  - VASCULAR RUPTURE [None]
  - PAIN IN EXTREMITY [None]
  - JOINT STIFFNESS [None]
